FAERS Safety Report 25543599 (Version 1)
Quarter: 2025Q3

REPORT INFORMATION
  Report Type: Spontaneous
  Country: EU (occurrence: EU)
  Receive Date: 20250711
  Receipt Date: 20250711
  Transmission Date: 20251020
  Serious: Yes (Disabling)
  Sender: RANBAXY
  Company Number: EU-SUN PHARMACEUTICAL INDUSTRIES LTD-2025RR-516305

PATIENT
  Age: 16 Year
  Sex: Female
  Weight: 85 kg

DRUGS (4)
  1. OLANZAPINE [Suspect]
     Active Substance: OLANZAPINE
     Indication: Insomnia
     Route: 065
     Dates: start: 20250129, end: 20250310
  2. OLANZAPINE [Suspect]
     Active Substance: OLANZAPINE
     Indication: Anxiety
  3. QUETIAPINE [Suspect]
     Active Substance: QUETIAPINE
     Indication: Insomnia
     Dosage: 50 MG: 2 H. AT 20
     Route: 065
     Dates: start: 20240101, end: 20250129
  4. QUETIAPINE [Suspect]
     Active Substance: QUETIAPINE
     Indication: Anxiety
     Route: 065
     Dates: start: 20230512, end: 20250129

REACTIONS (6)
  - Weight increased [Recovering/Resolving]
  - Anxiety [Recovering/Resolving]
  - Depression [Recovering/Resolving]
  - Hunger [Recovering/Resolving]
  - Skin striae [Recovering/Resolving]
  - Anxiety [Recovering/Resolving]
